FAERS Safety Report 18966644 (Version 2)
Quarter: 2021Q2

REPORT INFORMATION
  Report Type: Spontaneous
  Country: CA (occurrence: CA)
  Receive Date: 20210304
  Receipt Date: 20210416
  Transmission Date: 20210717
  Serious: Yes (Other)
  Sender: FDA-Public Use
  Company Number: CA-ROCHE-2783276

PATIENT
  Age: 59 Year
  Sex: Female

DRUGS (1)
  1. XOLAIR [Suspect]
     Active Substance: OMALIZUMAB
     Indication: CHRONIC SPONTANEOUS URTICARIA
     Route: 058

REACTIONS (3)
  - Blood disorder [Not Recovered/Not Resolved]
  - Colon cancer [Not Recovered/Not Resolved]
  - Cardiac disorder [Not Recovered/Not Resolved]
